FAERS Safety Report 6311812-1 (Version None)
Quarter: 2009Q3

REPORT INFORMATION
  Report Type: 
  Country: None (occurrence: None)
  Receive Date: 20090813
  Receipt Date: 20090813
  Transmission Date: 20100115
  Serious: Yes (Other)
  Sender: FDA-Public Use
  Company Number: None

PATIENT
  Age: 91 Year
  Sex: Female
  Weight: 58.9676 kg

DRUGS (1)
  1. DILTIAZEM CD - [Suspect]
     Indication: HYPERTENSION
     Dosage: 240 MG ONCE A DAY P.O.
     Route: 048
     Dates: start: 20090612, end: 20090622

REACTIONS (4)
  - MALAISE [None]
  - NAUSEA [None]
  - POLLAKIURIA [None]
  - PRODUCT SUBSTITUTION ISSUE [None]
